FAERS Safety Report 5840106-3 (Version None)
Quarter: 2008Q3

REPORT INFORMATION
  Report Type: 
  Country: None (occurrence: None)
  Receive Date: 20080811
  Receipt Date: 20080731
  Transmission Date: 20090109
  Serious: Yes (Life-Threatening, Hospitalization)
  Sender: FDA-Public Use
  Company Number: B0532384A

PATIENT
  Age: 76 Year
  Sex: Male

DRUGS (1)
  1. PROPAFENONE HCL [Suspect]
     Dosage: 300MG TWICE PER DAY
     Route: 048
     Dates: start: 20070101, end: 20070701

REACTIONS (6)
  - ATRIOVENTRICULAR BLOCK [None]
  - BRUGADA SYNDROME [None]
  - CARDIAC ARREST [None]
  - HEAD INJURY [None]
  - SYNCOPE [None]
  - VENTRICULAR FIBRILLATION [None]
